FAERS Safety Report 8901836 (Version 1)
Quarter: 2012Q4

REPORT INFORMATION
  Report Type: Spontaneous
  Country: US (occurrence: None)
  Receive Date: 20121107
  Receipt Date: 20121107
  Transmission Date: 20130627
  Serious: Yes (Other)
  Sender: FDA-Public Use
  Company Number: FK201203286

PATIENT
  Age: 46 Year
  Sex: Female

DRUGS (6)
  1. CYTARABINE [Suspect]
     Indication: ACUTE MYELOID LEUKAEMIA
  2. CLADRIBINE [Suspect]
  3. PLACEBO [Suspect]
  4. DAUNORUBICIN [Suspect]
  5. MITOXANTRONE [Concomitant]
  6. ETOPOSIDE (ETOPOSIDE) [Concomitant]

REACTIONS (3)
  - Hepatotoxicity [None]
  - Aspartate aminotransferase increased [None]
  - Alanine aminotransferase increased [None]
